FAERS Safety Report 5318829-4 (Version None)
Quarter: 2007Q2

REPORT INFORMATION
  Report Type: 
  Country: None (occurrence: None)
  Receive Date: 20070504
  Receipt Date: 20070504
  Transmission Date: 20071010
  Serious: Yes (Life-Threatening, Hospitalization)
  Sender: FDA-Public Use
  Company Number: None

PATIENT
  Age: 93 Year
  Sex: Male

DRUGS (2)
  1. CLOPIDOGREL [Suspect]
  2. ASPIRIN [Suspect]

REACTIONS (2)
  - CEREBRAL HAEMORRHAGE [None]
  - FALL [None]
